FAERS Safety Report 15436606 (Version 2)
Quarter: 2019Q1

REPORT INFORMATION
  Report Type: Spontaneous
  Country: CA (occurrence: CA)
  Receive Date: 20180927
  Receipt Date: 20190122
  Transmission Date: 20190417
  Serious: Yes (Life-Threatening, Hospitalization, Other)
  Sender: FDA-Public Use
  Company Number: CA-PFIZER INC-2018387338

PATIENT
  Age: 1 Month
  Sex: Male
  Weight: 3.63 kg

DRUGS (1)
  1. ADVIL PEDIATRIC DROPS [Suspect]
     Active Substance: IBUPROFEN
     Indication: PAIN
     Dosage: 1 ML, SINGLE
     Route: 048
     Dates: start: 20160107, end: 20160107

REACTIONS (6)
  - Dyspnoea [Recovered/Resolved]
  - Lethargy [Recovered/Resolved]
  - Recalled product administered [Unknown]
  - Product lot number issue [Unknown]
  - Heart rate decreased [Recovered/Resolved]
  - Wheezing [Recovered/Resolved]

NARRATIVE: CASE EVENT DATE: 20160107
